FAERS Safety Report 19442544 (Version 1)
Quarter: 2021Q2

REPORT INFORMATION
  Report Type: Spontaneous
  Country: US (occurrence: US)
  Receive Date: 20210618
  Receipt Date: 20210618
  Transmission Date: 20210717
  Serious: No
  Sender: FDA-Public Use
  Company Number: None

PATIENT
  Age: 54 Year
  Sex: Male
  Weight: 135.62 kg

DRUGS (2)
  1. COSENTYX [Suspect]
     Active Substance: SECUKINUMAB
     Indication: ANKYLOSING SPONDYLITIS
     Dosage: INJECTE 150MG (1 SYRINGE) SUBCUTANEOUSLY ONCE A WEEK FOR 5 WEEKS AS DIRECTED
     Route: 058
     Dates: start: 201902
  2. COSENTYX [Suspect]
     Active Substance: SECUKINUMAB
     Indication: PSORIASIS
     Dosage: INJECTE 150MG (1 SYRINGE) SUBCUTANEOUSLY ONCE A WEEK FOR 5 WEEKS AS DIRECTED
     Route: 058
     Dates: start: 201902

REACTIONS (1)
  - Hepatic failure [None]
